FAERS Safety Report 18525677 (Version 1)
Quarter: 2020Q4

REPORT INFORMATION
  Report Type: Report from Study
  Country: GB (occurrence: GB)
  Receive Date: 20201119
  Receipt Date: 20201119
  Transmission Date: 20210114
  Serious: Yes (Hospitalization)
  Sender: FDA-Public Use
  Company Number: GB-JNJFOC-20201117436

PATIENT
  Age: 7 Decade
  Sex: Female

DRUGS (3)
  1. STELARA [Suspect]
     Active Substance: USTEKINUMAB
  2. INSULIN [Concomitant]
     Active Substance: INSULIN NOS
  3. STELARA [Suspect]
     Active Substance: USTEKINUMAB
     Indication: PSORIATIC ARTHROPATHY
     Route: 058
     Dates: start: 20170728

REACTIONS (1)
  - COVID-19 pneumonia [Unknown]

NARRATIVE: CASE EVENT DATE: 2020
